FAERS Safety Report 5330650-X (Version None)
Quarter: 2007Q2

REPORT INFORMATION
  Report Type: 
  Country: None (occurrence: None)
  Receive Date: 20070516
  Receipt Date: 20070430
  Transmission Date: 20071010
  Serious: Yes (Other)
  Sender: FDA-Public Use
  Company Number: 4540

PATIENT
  Age: 13 Year
  Sex: Male

DRUGS (5)
  1. AMNESTEEM [Suspect]
     Indication: ACNE CYSTIC
     Dosage: SEE IMAGE
     Route: 048
     Dates: start: 20070101, end: 20070201
  2. AMNESTEEM [Suspect]
     Indication: ACNE CYSTIC
     Dosage: SEE IMAGE
     Route: 048
     Dates: start: 20070201, end: 20070301
  3. AMNESTEEM [Suspect]
     Indication: ACNE CYSTIC
     Dosage: SEE IMAGE
     Route: 048
     Dates: start: 20070301, end: 20070401
  4. AMNESTEEM [Suspect]
     Dosage: SEE IMAGE
     Route: 048
     Dates: start: 20070301, end: 20070401
  5. AMNESTEEM [Suspect]
     Dosage: SEE IMAGE
     Route: 048
     Dates: start: 20070401, end: 20070429

REACTIONS (3)
  - INTENTIONAL SELF-INJURY [None]
  - SKIN LACERATION [None]
  - SUICIDAL IDEATION [None]
